FAERS Safety Report 25495535 (Version 1)
Quarter: 2025Q2

REPORT INFORMATION
  Report Type: Spontaneous
  Country: GB (occurrence: GB)
  Receive Date: 20250630
  Receipt Date: 20250630
  Transmission Date: 20250717
  Serious: Yes (Other)
  Sender: IDORSIA PHARMACEUTICALS
  Company Number: None

PATIENT
  Age: 33 Year
  Sex: Female

DRUGS (9)
  1. QUVIVIQ [Suspect]
     Active Substance: DARIDOREXANT
     Indication: Insomnia
     Dosage: 25 MG, QD
     Route: 065
     Dates: start: 20250610, end: 20250625
  2. ARIPIPRAZOLE [Concomitant]
     Active Substance: ARIPIPRAZOLE
  3. QUETIAPINE [Concomitant]
     Active Substance: QUETIAPINE
  4. DOXAZOSIN [Concomitant]
     Active Substance: DOXAZOSIN MESYLATE
  5. RAMIPRIL [Concomitant]
     Active Substance: RAMIPRIL
  6. PROCYCLIDINE [Concomitant]
     Active Substance: PROCYCLIDINE
  7. METFORMIN [Concomitant]
     Active Substance: METFORMIN HYDROCHLORIDE
  8. DULOXETINE [Concomitant]
     Active Substance: DULOXETINE
  9. TEGRETOL [Concomitant]
     Active Substance: CARBAMAZEPINE

REACTIONS (1)
  - Dysphagia [Not Recovered/Not Resolved]

NARRATIVE: CASE EVENT DATE: 20250610
